FAERS Safety Report 4380516-7 (Version None)
Quarter: 2004Q2

REPORT INFORMATION
  Report Type: 
  Country: None (occurrence: None)
  Receive Date: 20040614
  Receipt Date: 20040527
  Transmission Date: 20050107
  Serious: Yes (Hospitalization, Other)
  Sender: FDA-Public Use
  Company Number: 166944

PATIENT
  Age: 46 Year
  Sex: Female
  Weight: 83.9154 kg

DRUGS (20)
  1. AVONEX [Suspect]
     Indication: MULTIPLE SCLEROSIS
     Dosage: 30 MCG QW IM
     Route: 030
     Dates: start: 20010601
  2. ELAVIL [Concomitant]
  3. TRAZODONE HCL [Concomitant]
  4. PROZAC [Concomitant]
  5. FLONASE [Concomitant]
  6. NEURONTIN [Concomitant]
  7. ACIPHEX [Concomitant]
  8. LORTAB [Concomitant]
  9. ZYPREXA [Concomitant]
  10. PREMARIN [Concomitant]
  11. DITROPAN [Concomitant]
  12. PENTOXIFYLLINE [Concomitant]
  13. CELEBREX [Concomitant]
  14. XANAX [Concomitant]
  15. COUMADIN [Concomitant]
  16. ZONEGRAN [Concomitant]
  17. LESCOL ^SANDOZ^ [Concomitant]
  18. FLEXERIL [Concomitant]
  19. ZANAFLEX [Concomitant]
  20. BENEFIBER [Concomitant]

REACTIONS (19)
  - ALCOHOL USE [None]
  - ANISOCYTOSIS [None]
  - ANXIETY [None]
  - ARRHYTHMIA [None]
  - AUTOIMMUNE DISORDER [None]
  - BENIGN HEPATIC NEOPLASM [None]
  - BLOOD CHOLESTEROL INCREASED [None]
  - CARDIOLIPIN ANTIBODY POSITIVE [None]
  - CHEST PAIN [None]
  - CHOLECYSTITIS CHRONIC [None]
  - CHOLESTASIS [None]
  - DEEP VEIN THROMBOSIS [None]
  - ELECTROCARDIOGRAM ABNORMAL [None]
  - GALLBLADDER NON-FUNCTIONING [None]
  - HEPATIC CIRRHOSIS [None]
  - PAIN IN EXTREMITY [None]
  - POLLAKIURIA [None]
  - TOBACCO ABUSE [None]
  - TREATMENT NONCOMPLIANCE [None]
